FAERS Safety Report 7122487-6 (Version None)
Quarter: 2010Q4

REPORT INFORMATION
  Report Type: 
  Country: None (occurrence: None)
  Receive Date: 20101124
  Receipt Date: 20101115
  Transmission Date: 20110411
  Serious: Yes (Hospitalization)
  Sender: FDA-Public Use
  Company Number: ES-GILEAD-E2B_00000938

PATIENT
  Age: 50 Year
  Sex: Male

DRUGS (1)
  1. ATRIPLA [Suspect]
     Indication: HIV TEST POSITIVE
     Route: 048
     Dates: start: 20100101, end: 20100101

REACTIONS (2)
  - PSYCHIATRIC SYMPTOM [None]
  - SUICIDE ATTEMPT [None]
